FAERS Safety Report 7553706-X (Version None)
Quarter: 2011Q2

REPORT INFORMATION
  Report Type: 
  Country: None (occurrence: None)
  Receive Date: 20110617
  Receipt Date: 20110610
  Transmission Date: 20111010
  Serious: Yes (Hospitalization)
  Sender: FDA-Public Use
  Company Number: IT-NOVOPROD-329811

PATIENT
  Age: 45 Year
  Sex: Female

DRUGS (1)
  1. ESTROFEM [Suspect]
     Indication: MENOPAUSAL SYMPTOMS
     Dosage: 2 MG, QD
     Route: 048

REACTIONS (1)
  - BENIGN OVARIAN TUMOUR [None]
